FAERS Safety Report 21964891 (Version 2)
Quarter: 2023Q1

REPORT INFORMATION
  Report Type: Spontaneous
  Country: US (occurrence: US)
  Receive Date: 20230207
  Receipt Date: 20230216
  Transmission Date: 20230418
  Serious: Yes (Hospitalization, Other)
  Sender: FDA-Public Use
  Company Number: US-009507513-2302USA000974

PATIENT
  Sex: Male

DRUGS (13)
  1. KEYTRUDA [Suspect]
     Active Substance: PEMBROLIZUMAB
     Indication: Transitional cell carcinoma
     Dosage: UNK
     Route: 042
     Dates: start: 20221025, end: 20221025
  2. KEYTRUDA [Suspect]
     Active Substance: PEMBROLIZUMAB
     Dosage: ALONE
     Route: 042
     Dates: start: 20221101, end: 20221101
  3. KEYTRUDA [Suspect]
     Active Substance: PEMBROLIZUMAB
     Dosage: UNK
     Route: 042
     Dates: start: 20221115, end: 20221115
  4. CARBOPLATIN [Suspect]
     Active Substance: CARBOPLATIN
     Indication: Transitional cell carcinoma
     Dosage: UNK
     Dates: start: 20221025, end: 20221025
  5. CARBOPLATIN [Suspect]
     Active Substance: CARBOPLATIN
     Dosage: UNK
     Dates: start: 20221115, end: 20221115
  6. GEMCITABINE HYDROCHLORIDE [Suspect]
     Active Substance: GEMCITABINE HYDROCHLORIDE
     Indication: Transitional cell carcinoma
     Dosage: UNK
     Dates: start: 20221025, end: 20221025
  7. GEMCITABINE HYDROCHLORIDE [Suspect]
     Active Substance: GEMCITABINE HYDROCHLORIDE
     Dosage: UNK
     Dates: start: 20221115, end: 20221115
  8. METOPROLOL [Concomitant]
     Active Substance: METOPROLOL
     Dosage: 12.5 MILLIGRAM, TWICE DAILY (BID)
  9. LISINOPRIL [Concomitant]
     Active Substance: LISINOPRIL
     Dosage: 10 MILLIGRAM
  10. PREDNISONE [Concomitant]
     Active Substance: PREDNISONE
     Dosage: 30 MG- TAPER DOWN 10 MG WEEKLY
  11. OMEPRAZOLE [Concomitant]
     Active Substance: OMEPRAZOLE
     Dosage: UNK
  12. BACTRIM [Concomitant]
     Active Substance: SULFAMETHOXAZOLE\TRIMETHOPRIM
     Dosage: 1 TABLET 3 DAYS A WEEK (TIW)
     Route: 048
  13. CELECOXIB [Concomitant]
     Active Substance: CELECOXIB
     Dosage: 40 MILLIGRAM

REACTIONS (26)
  - Myocardial necrosis marker increased [Unknown]
  - Adverse event [Unknown]
  - Flushing [Unknown]
  - Eye movement disorder [Unknown]
  - Malaise [Unknown]
  - Cardiac pacemaker insertion [Unknown]
  - Cardiac pacemaker insertion [Unknown]
  - Adverse event [Unknown]
  - Neuropathy peripheral [Unknown]
  - Gait disturbance [Unknown]
  - Feeling abnormal [Recovering/Resolving]
  - Fumbling [Unknown]
  - Diplopia [Unknown]
  - Visual impairment [Unknown]
  - Aphonia [Unknown]
  - Dysphagia [Unknown]
  - Dysphonia [Unknown]
  - Eye disorder [Unknown]
  - Ill-defined disorder [Unknown]
  - Malaise [Recovering/Resolving]
  - Asthenia [Unknown]
  - Weight decreased [Unknown]
  - Diarrhoea [Unknown]
  - Product use in unapproved indication [Unknown]
  - Product use issue [Unknown]
  - Product use issue [Unknown]

NARRATIVE: CASE EVENT DATE: 20220101
